FAERS Safety Report 17851347 (Version 1)
Quarter: 2020Q2

REPORT INFORMATION
  Report Type: Spontaneous
  Country: GB (occurrence: GB)
  Receive Date: 20200602
  Receipt Date: 20200602
  Transmission Date: 20200714
  Serious: Yes (Other)
  Sender: FDA-Public Use
  Company Number: GB-MYLANLABS-2020M1052895

PATIENT
  Age: 18 Year
  Sex: Male

DRUGS (18)
  1. SODIUM CHLORIDE. [Concomitant]
     Active Substance: SODIUM CHLORIDE
  2. SALBUTAMOL [Concomitant]
     Active Substance: ALBUTEROL
  3. LACTULOSE. [Concomitant]
     Active Substance: LACTULOSE
  4. SODIUM VALPROATE [Concomitant]
     Active Substance: VALPROATE SODIUM
  5. GLYCOPYRRONIUM BROMIDE [Concomitant]
     Active Substance: GLYCOPYRRONIUM
  6. HYOSCINE [Concomitant]
     Active Substance: SCOPOLAMINE
  7. ESOMEPRAZOLE. [Concomitant]
     Active Substance: ESOMEPRAZOLE MAGNESIUM
  8. MIDAZOLAM. [Concomitant]
     Active Substance: MIDAZOLAM
  9. IBUPROFEN. [Concomitant]
     Active Substance: IBUPROFEN
  10. NITRAZEPAM [Concomitant]
     Active Substance: NITRAZEPAM
  11. DORNASE ALFA. [Concomitant]
     Active Substance: DORNASE ALFA
  12. CHLORAL HYDRATE [Concomitant]
     Active Substance: CHLORAL HYDRATE
  13. CO-CARELDOPA [Concomitant]
     Active Substance: CARBIDOPA\LEVODOPA
  14. AZITHROMYCIN ANHYDROUS. [Concomitant]
     Active Substance: AZITHROMYCIN ANHYDROUS
  15. CIPROFLOXACIN. [Suspect]
     Active Substance: CIPROFLOXACIN
     Indication: PRODUCT USED FOR UNKNOWN INDICATION
     Dosage: 750 MILLIGRAM
     Route: 048
     Dates: start: 20200506
  16. PARACETAMOL [Concomitant]
     Active Substance: ACETAMINOPHEN
  17. DOMPERIDONE MALEATE [Concomitant]
     Active Substance: DOMPERIDONE MALEATE
  18. MELATONIN [Concomitant]
     Active Substance: MELATONIN

REACTIONS (6)
  - Skin discharge [Unknown]
  - Photosensitivity reaction [Unknown]
  - Skin discolouration [Unknown]
  - Swelling face [Recovered/Resolved with Sequelae]
  - Drug hypersensitivity [Unknown]
  - Blister [Unknown]

NARRATIVE: CASE EVENT DATE: 20200506
